FAERS Safety Report 21682295 (Version 2)
Quarter: 2023Q2

REPORT INFORMATION
  Report Type: Spontaneous
  Country: US (occurrence: None)
  Receive Date: 20221205
  Receipt Date: 20230602
  Transmission Date: 20230721
  Serious: Yes (Other)
  Sender: FDA-Public Use
  Company Number: US-ROCHE-3229789

PATIENT
  Age: 84 Year
  Sex: Male

DRUGS (20)
  1. ERIVEDGE [Suspect]
     Active Substance: VISMODEGIB
     Indication: Basal cell carcinoma
     Dosage: WITH OR WITHOUT FOOD, SWALLOW WHOLE, DO NOT BREAK
     Route: 048
  2. ACETAMINOPHEN [Concomitant]
     Active Substance: ACETAMINOPHEN
     Route: 048
  3. VENTOLIN HFA [Concomitant]
     Active Substance: ALBUTEROL SULFATE
  4. ZYLOPRIM [Concomitant]
     Active Substance: ALLOPURINOL
  5. ASCORBIC ACID\BIOTIN\CALCIUM PANTOTHENATE\CYANOCOBALAMIN\FOLIC ACID\NI [Concomitant]
     Active Substance: ASCORBIC ACID\BIOTIN\CALCIUM PANTOTHENATE\CYANOCOBALAMIN\FOLIC ACID\NIACINAMIDE\PYRIDOXINE HYDROCHLO
  6. DIPROLENE AF [Concomitant]
     Active Substance: BETAMETHASONE DIPROPIONATE
  7. CALCITRIOL [Concomitant]
     Active Substance: CALCITRIOL
  8. HYPROMELLOSE, UNSPECIFIED [Concomitant]
     Active Substance: HYPROMELLOSE, UNSPECIFIED
  9. INSULIN ASPART [Concomitant]
     Active Substance: INSULIN ASPART
  10. NIACINAMIDE [Concomitant]
     Active Substance: NIACINAMIDE
  11. TRESIBA [Concomitant]
     Active Substance: INSULIN DEGLUDEC
  12. MAGNESIUM OXIDE [Concomitant]
     Active Substance: MAGNESIUM OXIDE
     Route: 048
  13. TOPROL XL [Concomitant]
     Active Substance: METOPROLOL SUCCINATE
  14. BACTROBAN [Concomitant]
     Active Substance: MUPIROCIN\MUPIROCIN CALCIUM
  15. KLOR-CON M20 [Concomitant]
     Active Substance: POTASSIUM CHLORIDE
  16. PRAVACHOL [Concomitant]
     Active Substance: PRAVASTATIN SODIUM
  17. SEVELAMER [Concomitant]
     Active Substance: SEVELAMER
     Route: 048
  18. SILVER SULFADIAZENE [Concomitant]
     Active Substance: SILVER SULFADIAZINE
  19. DEMADEX [Concomitant]
     Active Substance: TORSEMIDE
  20. DESYREL [Concomitant]
     Active Substance: TRAZODONE HYDROCHLORIDE

REACTIONS (41)
  - Immune thrombocytopenia [Unknown]
  - Acute respiratory failure [Unknown]
  - Hypertensive nephropathy [Unknown]
  - Aortic stenosis [Unknown]
  - Myocardial ischaemia [Unknown]
  - Pulmonary hypertension [Unknown]
  - Hepatitis C [Unknown]
  - Diabetic complication renal [Unknown]
  - Renal failure [Unknown]
  - Acute kidney injury [Unknown]
  - Chronic kidney disease [Unknown]
  - Thrombocytopenia [Unknown]
  - Type 2 diabetes mellitus [Unknown]
  - Platelet count decreased [Unknown]
  - Syncope [Unknown]
  - Chronic obstructive pulmonary disease [Unknown]
  - Snoring [Unknown]
  - Apnoea [Unknown]
  - Bundle branch block left [Unknown]
  - Chronic left ventricular failure [Unknown]
  - Sinus node dysfunction [Unknown]
  - Obesity [Unknown]
  - Defaecation urgency [Unknown]
  - Hepatic steatosis [Unknown]
  - Vitamin D deficiency [Unknown]
  - Urinary tract infection [Unknown]
  - Benign prostatic hyperplasia [Unknown]
  - Proteinuria [Unknown]
  - Rotator cuff syndrome [Unknown]
  - Intervertebral disc degeneration [Unknown]
  - Abdominal hernia [Unknown]
  - Joint effusion [Unknown]
  - Osteoarthritis [Unknown]
  - Posterior tibial tendon dysfunction [Unknown]
  - Gout [Unknown]
  - Hypercholesterolaemia [Unknown]
  - Hyperparathyroidism [Unknown]
  - Hyperlipidaemia [Unknown]
  - Anaemia of chronic disease [Unknown]
  - Hypersomnia [Unknown]
  - Performance status decreased [Unknown]
